FAERS Safety Report 8362349 (Version 2)
Quarter: 2015Q1

REPORT INFORMATION
  Report Type: Report from Study
  Country: US (occurrence: US)
  Receive Date: 20120130
  Receipt Date: 20150224
  Transmission Date: 20150721
  Serious: Yes (Death)
  Sender: FDA-Public Use
  Company Number: US-ROCHE-1034419

PATIENT
  Sex: Male

DRUGS (15)
  1. AVASTIN [Suspect]
     Active Substance: BEVACIZUMAB
     Route: 042
  2. AVASTIN [Suspect]
     Active Substance: BEVACIZUMAB
     Route: 042
  3. IRINOTECAN [Concomitant]
     Active Substance: IRINOTECAN
     Route: 042
  4. AVASTIN [Suspect]
     Active Substance: BEVACIZUMAB
     Indication: BRAIN NEOPLASM MALIGNANT
     Route: 042
     Dates: start: 20080314
  5. ATIVAN [Concomitant]
     Active Substance: LORAZEPAM
  6. DEXAMETHASONE. [Concomitant]
     Active Substance: DEXAMETHASONE
     Route: 042
  7. PALONOSETRON [Concomitant]
     Active Substance: PALONOSETRON
     Route: 042
  8. ATROPINE [Concomitant]
     Active Substance: ATROPINE
     Indication: DIARRHOEA
     Route: 042
  9. APREPITANT. [Concomitant]
     Active Substance: APREPITANT
     Route: 048
  10. DEXTROSE. [Concomitant]
     Active Substance: DEXTROSE
     Route: 065
  11. APREPITANT. [Concomitant]
     Active Substance: APREPITANT
     Route: 048
  12. IRINOTECAN [Concomitant]
     Active Substance: IRINOTECAN
     Route: 042
  13. SODIUM CHLORIDE. [Concomitant]
     Active Substance: SODIUM CHLORIDE
     Route: 042
  14. COMPAZINE [Concomitant]
     Active Substance: PROCHLORPERAZINE MALEATE
     Indication: NAUSEA
     Route: 042
  15. AVASTIN [Suspect]
     Active Substance: BEVACIZUMAB
     Route: 042

REACTIONS (4)
  - Nausea [Recovering/Resolving]
  - Death [Fatal]
  - Aura [Unknown]
  - Abdominal discomfort [Unknown]
